FAERS Safety Report 9912113 (Version 3)
Quarter: 2014Q1

REPORT INFORMATION
  Report Type: Report from Study
  Country: FR (occurrence: FR)
  Receive Date: 20140219
  Receipt Date: 20140304
  Transmission Date: 20141002
  Serious: Yes (Hospitalization)
  Sender: FDA-Public Use
  Company Number: FR-BRISTOL-MYERS SQUIBB COMPANY-20214797

PATIENT
  Age: 56 Year
  Sex: Male

DRUGS (3)
  1. CETUXIMAB [Suspect]
     Indication: SQUAMOUS CELL CARCINOMA OF HEAD AND NECK
     Dosage: 18-18JUN12:250MG/M2?MOST RECENT AND LAST DOSE 8AUG12
     Route: 042
     Dates: start: 20120618, end: 20120808
  2. CARBOPLATIN [Suspect]
     Indication: SQUAMOUS CELL CARCINOMA OF HEAD AND NECK
     Dosage: MOST RECENT AND LAST DOSE 9AUG12
     Route: 042
     Dates: start: 20120625
  3. FLUOROURACIL [Suspect]
     Indication: SQUAMOUS CELL CARCINOMA OF HEAD AND NECK
     Dosage: BET 6AUG-9AUG12:2400MG/M2?MOST RECENT AND LAST DOSE 9AUG12
     Route: 042
     Dates: start: 20120625

REACTIONS (1)
  - Respiratory distress [Recovered/Resolved]
